FAERS Safety Report 21825784 (Version 1)
Quarter: 2023Q1

REPORT INFORMATION
  Report Type: Spontaneous
  Country: KR (occurrence: KR)
  Receive Date: 20230105
  Receipt Date: 20230105
  Transmission Date: 20230418
  Serious: Yes (Other)
  Sender: FDA-Public Use
  Company Number: None

PATIENT
  Age: 69 Year
  Sex: Female

DRUGS (6)
  1. DONEPEZIL [Interacting]
     Active Substance: DONEPEZIL
     Indication: Dementia Alzheimer^s type
     Dosage: UNK
     Route: 065
  2. LEVETIRACETAM [Interacting]
     Active Substance: LEVETIRACETAM
     Indication: Status epilepticus
     Dosage: 1000 MILLIGRAM; PER DAY
     Route: 048
  3. PHENYTOIN [Interacting]
     Active Substance: PHENYTOIN
     Indication: Status epilepticus
     Dosage: 900 MILLIGRAM; PER DAY
     Route: 042
  4. PHENYTOIN [Interacting]
     Active Substance: PHENYTOIN
     Dosage: 300 MILLIGRAM; PER DAY
     Route: 042
  5. PHENYTOIN [Interacting]
     Active Substance: PHENYTOIN
     Dosage: 200 MILLIGRAM; PER DAY
     Route: 042
  6. MEMANTINE [Concomitant]
     Active Substance: MEMANTINE
     Indication: Dementia Alzheimer^s type
     Dosage: UNK
     Route: 065

REACTIONS (2)
  - Drug interaction [Unknown]
  - Tremor [Recovered/Resolved]
